FAERS Safety Report 10778472 (Version 4)
Quarter: 2015Q2

REPORT INFORMATION
  Report Type: Spontaneous
  Country: JP (occurrence: JP)
  Receive Date: 20150209
  Receipt Date: 20150421
  Transmission Date: 20150821
  Serious: Yes (Death, Hospitalization)
  Sender: FDA-Public Use
  Company Number: JP-ROCHE-1535014

PATIENT
  Age: 72 Year
  Sex: Female
  Weight: 41 kg

DRUGS (2)
  1. ACTEMRA [Suspect]
     Active Substance: TOCILIZUMAB
     Indication: RHEUMATOID ARTHRITIS
     Dosage: DOSAGE IS UNCERTAIN.
     Route: 041
     Dates: start: 20111220, end: 20150106
  2. METHOTREXATE [Concomitant]
     Active Substance: METHOTREXATE
     Indication: RHEUMATOID ARTHRITIS
     Route: 048
     Dates: start: 2007

REACTIONS (5)
  - Arthralgia [Unknown]
  - Sepsis [Fatal]
  - Pelvic abscess [Fatal]
  - Disseminated intravascular coagulation [Recovered/Resolved]
  - Diverticulitis [Fatal]

NARRATIVE: CASE EVENT DATE: 20150126
